FAERS Safety Report 24171808 (Version 3)
Quarter: 2025Q3

REPORT INFORMATION
  Report Type: Spontaneous
  Country: US (occurrence: US)
  Receive Date: 20240805
  Receipt Date: 20250912
  Transmission Date: 20251021
  Serious: Yes (Disabling, Other)
  Sender: AMGEN
  Company Number: US-AMGEN-USASP2024152750

PATIENT
  Age: 49 Year
  Sex: Female
  Weight: 113.5 kg

DRUGS (47)
  1. TEPEZZA [Suspect]
     Active Substance: TEPROTUMUMAB-TRBW
     Indication: Endocrine ophthalmopathy
     Route: 042
     Dates: start: 20220803
  2. TEPEZZA [Suspect]
     Active Substance: TEPROTUMUMAB-TRBW
     Indication: Graves^ disease
     Route: 042
     Dates: start: 20220823
  3. TEPEZZA [Suspect]
     Active Substance: TEPROTUMUMAB-TRBW
     Route: 042
     Dates: start: 2022, end: 202209
  4. PREDNISONE [Suspect]
     Active Substance: PREDNISONE
     Indication: Product used for unknown indication
     Route: 065
  5. SODIUM CHLORIDE [Concomitant]
     Active Substance: SODIUM CHLORIDE
     Route: 042
     Dates: start: 20220803
  6. SODIUM CHLORIDE [Concomitant]
     Active Substance: SODIUM CHLORIDE
     Route: 042
     Dates: start: 20220823
  7. ACETAMINOPHEN [Concomitant]
     Active Substance: ACETAMINOPHEN
     Route: 048
  8. TUDORZA PRESSAIR [Concomitant]
     Active Substance: ACLIDINIUM BROMIDE
  9. PROVENTIL HFA [Concomitant]
     Active Substance: ALBUTEROL SULFATE
  10. ELIQUIS [Concomitant]
     Active Substance: APIXABAN
     Dosage: 5 MILLIGRAM, BID
     Route: 048
  11. VITAMIN D3 [Concomitant]
     Active Substance: CHOLECALCIFEROL
     Route: 065
  12. KLONOPIN [Concomitant]
     Active Substance: CLONAZEPAM
     Dosage: 1 MILLIGRAM, TID
     Route: 048
  13. LOMOTIL [Concomitant]
     Active Substance: ATROPINE SULFATE\DIPHENOXYLATE HYDROCHLORIDE
     Route: 048
  14. FISH OIL [Concomitant]
     Active Substance: FISH OIL
     Route: 048
  15. GABAPENTIN [Concomitant]
     Active Substance: GABAPENTIN
     Dosage: 300 MILLIGRAM, BID
     Route: 048
  16. LEVOTHYROXINE SODIUM [Concomitant]
     Active Substance: LEVOTHYROXINE SODIUM
     Dosage: 112 MICROGRAM, QD
     Route: 048
  17. LORATADINE [Concomitant]
     Active Substance: LORATADINE
     Dosage: 10 MILLIGRAM, QD
     Route: 048
  18. MECLIZINE [Concomitant]
     Active Substance: MECLIZINE HYDROCHLORIDE
     Dosage: 25 MILLIGRAM, QD
     Route: 048
  19. MONTELUKAST [Concomitant]
     Active Substance: MONTELUKAST
     Dosage: 10 MILLIGRAM, QD
     Route: 048
  20. ONDANSETRON [Concomitant]
     Active Substance: ONDANSETRON
     Route: 048
  21. PANTOPRAZOLE [Concomitant]
     Active Substance: PANTOPRAZOLE
     Dosage: 40 MILLIGRAM, BID
     Route: 048
  22. KLOR-CON M20 [Concomitant]
     Active Substance: POTASSIUM CHLORIDE
     Dosage: 20 MILLIEQUIVALENT, BID
     Route: 048
  23. PRAVASTATIN [Concomitant]
     Active Substance: PRAVASTATIN
     Dosage: 20 MILLIGRAM, QD
     Route: 048
  24. PROMETHAZINE [Concomitant]
     Active Substance: PROMETHAZINE HYDROCHLORIDE
     Route: 048
  25. TRIAMCINOLONE [Concomitant]
     Active Substance: TRIAMCINOLONE
     Route: 065
  26. POTASSIUM CHLORIDE [Concomitant]
     Active Substance: POTASSIUM CHLORIDE
     Dosage: 20 MILLIEQUIVALENT, BID
     Route: 048
  27. ALBUTEROL [Concomitant]
     Active Substance: ALBUTEROL
  28. DICLOFENAC [Concomitant]
     Active Substance: DICLOFENAC
     Route: 061
  29. SYNTHROID [Concomitant]
     Active Substance: LEVOTHYROXINE SODIUM
     Route: 065
  30. EPINEPHRINE [Concomitant]
     Active Substance: EPINEPHRINE
     Route: 030
  31. SOLU-MEDROL [Concomitant]
     Active Substance: METHYLPREDNISOLONE SODIUM SUCCINATE
     Route: 042
  32. PEPCID [Concomitant]
     Active Substance: FAMOTIDINE
     Route: 042
  33. OXYBUTYNIN [Concomitant]
     Active Substance: OXYBUTYNIN
     Dosage: 10 MILLIGRAM, QD
     Route: 048
  34. BENADRYL [Concomitant]
     Active Substance: DIPHENHYDRAMINE HYDROCHLORIDE
     Indication: Anaphylactic reaction
     Route: 040
  35. KENALOG [Concomitant]
     Active Substance: TRIAMCINOLONE ACETONIDE
     Route: 065
  36. PHENERGAN [Concomitant]
     Active Substance: PROMETHAZINE HYDROCHLORIDE
     Dosage: 25 MILLIGRAM, Q8H
     Route: 048
  37. PRAVACHOL [Concomitant]
     Active Substance: PRAVASTATIN SODIUM
     Dosage: 20 MILLIGRAM, QD
     Route: 048
  38. TYLENOL [Concomitant]
     Active Substance: ACETAMINOPHEN
     Route: 048
  39. VOLTAREN [Concomitant]
     Active Substance: DICLOFENAC SODIUM
     Route: 061
  40. NEURONTIN [Concomitant]
     Active Substance: GABAPENTIN
     Dosage: 300 MILLIGRAM, QD
     Route: 048
  41. CLARITIN [Concomitant]
     Active Substance: LORATADINE
     Route: 048
  42. ANTIVERT [Concomitant]
     Active Substance: MECLIZINE HYDROCHLORIDE
     Dosage: 25 MILLIGRAM, TID
     Route: 048
  43. SINGULAIR [Concomitant]
     Active Substance: MONTELUKAST SODIUM
     Dosage: 10 MILLIGRAM, QD
     Route: 048
  44. ZOFRAN [Concomitant]
     Active Substance: ONDANSETRON HYDROCHLORIDE
     Dosage: 4 MILLIGRAM, Q6H
     Route: 048
  45. PROTONIX [Concomitant]
     Active Substance: PANTOPRAZOLE SODIUM
     Dosage: 40 MILLIGRAM, QD
     Route: 048
  46. ASPIRIN [Concomitant]
     Active Substance: ASPIRIN
     Dosage: 81 MILLIGRAM, QD
     Route: 048
     Dates: start: 20221118
  47. ZITHROMAX [Concomitant]
     Active Substance: AZITHROMYCIN DIHYDRATE
     Dosage: 250 MILLIGRAM, QD
     Route: 048
     Dates: start: 20221122

REACTIONS (16)
  - Deafness neurosensory [Not Recovered/Not Resolved]
  - Endocrine ophthalmopathy [Unknown]
  - Graves^ disease [Unknown]
  - Pain [Unknown]
  - Emotional distress [Unknown]
  - Anxiety [Unknown]
  - Quality of life decreased [Unknown]
  - Discomfort [Unknown]
  - Product use complaint [Unknown]
  - Sleep disorder due to a general medical condition [Unknown]
  - Blood pressure systolic increased [Unknown]
  - Obstructive sleep apnoea syndrome [Unknown]
  - Respiration abnormal [Unknown]
  - Tinnitus [Not Recovered/Not Resolved]
  - Blood thyroid stimulating hormone increased [Unknown]
  - Thyroxine free decreased [Unknown]

NARRATIVE: CASE EVENT DATE: 20220823
